FAERS Safety Report 8545331-9 (Version None)
Quarter: 2012Q3

REPORT INFORMATION
  Report Type: 
  Country: None (occurrence: None)
  Receive Date: 20120719
  Receipt Date: 20120719
  Transmission Date: 20120928
  Serious: Yes (Hospitalization)
  Sender: FDA-Public Use
  Company Number: None

PATIENT
  Sex: Male
  Weight: 102.7 kg

DRUGS (3)
  1. INTRON A [Suspect]
     Dosage: 168 MILLION IU
     Dates: end: 20120418
  2. ZITHROMAX [Concomitant]
  3. ROCEPHNI [Concomitant]

REACTIONS (7)
  - HEADACHE [None]
  - PANCREATITIS [None]
  - CHOLELITHIASIS [None]
  - AXILLARY MASS [None]
  - LUNG INFILTRATION [None]
  - PROTEINURIA [None]
  - ATELECTASIS [None]
